FAERS Safety Report 7454315-3 (Version None)
Quarter: 2011Q2

REPORT INFORMATION
  Report Type: 
  Country: None (occurrence: None)
  Receive Date: 20110503
  Receipt Date: 20110418
  Transmission Date: 20111010
  Serious: Yes (Other)
  Sender: FDA-Public Use
  Company Number: US-BAYER-2010-008164

PATIENT
  Sex: Female
  Weight: 126.98 kg

DRUGS (3)
  1. YASMIN [Suspect]
     Indication: PRODUCT USED FOR UNKNOWN INDICATION
     Dosage: UNK
     Dates: start: 20070901, end: 20090101
  2. NSAID'S [Concomitant]
     Dosage: UNK UNK, PRN
  3. YAZ [Suspect]
     Indication: PREMENSTRUAL SYNDROME
     Dosage: UNK
     Dates: start: 20070901, end: 20090101

REACTIONS (6)
  - EMOTIONAL DISTRESS [None]
  - INJURY [None]
  - SUPRAVENTRICULAR TACHYCARDIA [None]
  - PAIN [None]
  - DEEP VEIN THROMBOSIS [None]
  - ARRHYTHMIA [None]
